FAERS Safety Report 10833465 (Version 2)
Quarter: 2015Q4

REPORT INFORMATION
  Report Type: Spontaneous
  Country: US (occurrence: US)
  Receive Date: 20150219
  Receipt Date: 20151027
  Transmission Date: 20160304
  Serious: Yes (Other)
  Sender: FDA-Public Use
  Company Number: US-JNJFOC-20150214106

PATIENT

DRUGS (2)
  1. IBRUTINIB [Suspect]
     Active Substance: IBRUTINIB
     Indication: PRODUCT USED FOR UNKNOWN INDICATION
     Route: 048
  2. UBLITUXIMAB [Suspect]
     Active Substance: UBLITUXIMAB
     Indication: PRODUCT USED FOR UNKNOWN INDICATION

REACTIONS (6)
  - Infusion related reaction [Unknown]
  - Rash [Unknown]
  - Leukocytosis [Unknown]
  - Thrombocytopenia [Unknown]
  - Diarrhoea [Unknown]
  - Neutropenia [Unknown]
